FAERS Safety Report 12631625 (Version 2)
Quarter: 2016Q3

REPORT INFORMATION
  Report Type: Spontaneous
  Country: US (occurrence: US)
  Receive Date: 20160808
  Receipt Date: 20160808
  Transmission Date: 20161109
  Serious: No
  Sender: FDA-Public Use
  Company Number: US-BEH-2015054983

PATIENT
  Sex: Female
  Weight: 60 kg

DRUGS (23)
  1. ASPIRIN EC [Concomitant]
     Active Substance: ASPIRIN
  2. DILTIAZEM. [Concomitant]
     Active Substance: DILTIAZEM
  3. TRAMADOL. [Concomitant]
     Active Substance: TRAMADOL
  4. DIPHENHYDRAMINE. [Concomitant]
     Active Substance: DIPHENHYDRAMINE
  5. SYMBICORT [Concomitant]
     Active Substance: BUDESONIDE\FORMOTEROL FUMARATE DIHYDRATE
  6. CALCIUM+D [Concomitant]
     Active Substance: CALCIUM\VITAMIN D
  7. BIOTIN [Concomitant]
     Active Substance: BIOTIN
  8. HIZENTRA [Suspect]
     Active Substance: HUMAN IMMUNOGLOBULIN G
     Indication: IMMUNODEFICIENCY COMMON VARIABLE
     Route: 058
  9. LIDOCAINE. [Concomitant]
     Active Substance: LIDOCAINE
  10. EPIPEN [Concomitant]
     Active Substance: EPINEPHRINE
     Indication: ANAPHYLACTIC REACTION
  11. LEVOTHYROXINE. [Concomitant]
     Active Substance: LEVOTHYROXINE
  12. MAGNESIUM [Concomitant]
     Active Substance: MAGNESIUM
  13. LORAZEPAM. [Concomitant]
     Active Substance: LORAZEPAM
  14. TRAZODONE [Concomitant]
     Active Substance: TRAZODONE HYDROCHLORIDE
  15. OXYGEN. [Concomitant]
     Active Substance: OXYGEN
  16. ACETAMINOPHEN. [Concomitant]
     Active Substance: ACETAMINOPHEN
  17. SINGULAIR [Concomitant]
     Active Substance: MONTELUKAST SODIUM
  18. DALIRESP [Concomitant]
     Active Substance: ROFLUMILAST
  19. TUSSIONEX PENNKINETIC [Concomitant]
     Active Substance: CHLORPHENIRAMINE\HYDROCODONE
  20. PREDNISONE. [Concomitant]
     Active Substance: PREDNISONE
  21. DIGITEK [Concomitant]
     Active Substance: DIGOXIN
  22. PROBIOTIC + ACIDOPHILUS [Concomitant]
  23. XOPENEX [Concomitant]
     Active Substance: LEVALBUTEROL HYDROCHLORIDE

REACTIONS (2)
  - Pain [Unknown]
  - Headache [Unknown]
